FAERS Safety Report 9030769 (Version 1)
Quarter: 2013Q1

REPORT INFORMATION
  Report Type: Spontaneous
  Country: JP (occurrence: JP)
  Receive Date: 20130123
  Receipt Date: 20130123
  Transmission Date: 20140127
  Serious: Yes (Other)
  Sender: FDA-Public Use
  Company Number: PHHY2013JP005919

PATIENT
  Sex: 0

DRUGS (1)
  1. RITALIN [Suspect]
     Route: 048

REACTIONS (5)
  - Mental disorder [Unknown]
  - Aggression [Unknown]
  - Drug intolerance [Unknown]
  - Drug dependence [Unknown]
  - Feeling abnormal [Unknown]
